FAERS Safety Report 4629509-2 (Version None)
Quarter: 2005Q2

REPORT INFORMATION
  Report Type: 
  Country: None (occurrence: None)
  Receive Date: 20050405
  Receipt Date: 20050323
  Transmission Date: 20051028
  Serious: Yes (Other)
  Sender: FDA-Public Use
  Company Number: HQWYE364525MAR05

PATIENT
  Age: 28 Year
  Sex: Female
  Weight: 59.02 kg

DRUGS (9)
  1. EFFEXOR XR [Suspect]
     Indication: DEPRESSION
     Dosage: SEE IMAGE
     Dates: start: 20040301, end: 20050201
  2. EFFEXOR XR [Suspect]
     Indication: DEPRESSION
     Dosage: SEE IMAGE
     Dates: start: 20050319, end: 20050301
  3. EFFEXOR XR [Suspect]
     Indication: DEPRESSION
     Dosage: SEE IMAGE
     Dates: start: 20050201, end: 20050316
  4. EFFEXOR XR [Suspect]
     Indication: DEPRESSION
     Dosage: SEE IMAGE
     Dates: start: 20050301
  5. BUPROPION HCL [Suspect]
     Indication: DEPRESSION
     Dosage: 100 MG 1X PER 1 DAY
     Dates: start: 20050311, end: 20050316
  6. SINGULAIR [Concomitant]
  7. ADVAIR (FLUTICASONE PROPIONATE/SALMETEROL XINAFOATE) [Concomitant]
  8. LORAZEPAM [Concomitant]
  9. TRAZODONE HCL [Concomitant]

REACTIONS (4)
  - DRUG WITHDRAWAL SYNDROME [None]
  - HYPOTENSION [None]
  - THERAPEUTIC RESPONSE DECREASED [None]
  - TREMOR [None]
